FAERS Safety Report 9280735 (Version 1)
Quarter: 2013Q2

REPORT INFORMATION
  Report Type: Spontaneous
  Country: US (occurrence: US)
  Receive Date: 20130509
  Receipt Date: 20130509
  Transmission Date: 20140414
  Serious: No
  Sender: FDA-Public Use
  Company Number: US-PFIZER INC-2013143025

PATIENT
  Sex: Male

DRUGS (4)
  1. PRISTIQ [Suspect]
     Dosage: 100 MG, 1X/DAY (1 QAM)
  2. SEROQUEL [Suspect]
     Dosage: UNK
  3. TEGRETOL [Suspect]
     Dosage: UNK
  4. TRAZODONE [Suspect]
     Dosage: UNK

REACTIONS (1)
  - Drug hypersensitivity [Unknown]
